FAERS Safety Report 6043897-4 (Version None)
Quarter: 2009Q1

REPORT INFORMATION
  Report Type: 
  Country: None (occurrence: None)
  Receive Date: 20090120
  Receipt Date: 20090114
  Transmission Date: 20090719
  Serious: Yes (Hospitalization)
  Sender: FDA-Public Use
  Company Number: US-BIOGENIDEC-2006BI007023

PATIENT
  Age: 56 Year
  Sex: Female

DRUGS (2)
  1. AVONEX [Suspect]
     Indication: MULTIPLE SCLEROSIS
     Route: 030
     Dates: start: 20030701, end: 20030101
  2. AVONEX [Suspect]
     Route: 030
     Dates: start: 20040901, end: 20070101

REACTIONS (7)
  - ABDOMINAL ABSCESS [None]
  - ABDOMINAL PAIN [None]
  - DIABETES MELLITUS [None]
  - INFECTION [None]
  - PANCREATITIS [None]
  - SPLENECTOMY [None]
  - TRACHEAL OPERATION [None]
